FAERS Safety Report 8408964 (Version 2)
Quarter: 2013Q2

REPORT INFORMATION
  Report Type: Spontaneous
  Country: US (occurrence: None)
  Receive Date: 20111227
  Receipt Date: 20120426
  Transmission Date: 20140414
  Serious: Yes (Other)
  Sender: FDA-Public Use
  Company Number: PHEH2011US009994

PATIENT
  Age: 30 Year
  Sex: Female

DRUGS (4)
  1. GILENYA [Suspect]
     Indication: RELAPSING-REMITTING MULTIPLE SCLEROSIS
     Dosage: 0.5 MG, QD, ORAL
     Route: 048
     Dates: start: 20111112
  2. WELLBUTRIN (BUPROPION HYDROCHLORIDE) [Concomitant]
  3. SINGULAIR (MONTELUKAST) 10MG [Concomitant]
  4. TRAZODONE (TRAZODONE) [Concomitant]

REACTIONS (3)
  - ABDOMINAL DISCOMFORT [None]
  - PAIN [None]
  - INFLUENZA LIKE ILLNESS [None]
